FAERS Safety Report 13981269 (Version 1)
Quarter: 2017Q3

REPORT INFORMATION
  Report Type: Spontaneous
  Country: TR (occurrence: TR)
  Receive Date: 20170918
  Receipt Date: 20170918
  Transmission Date: 20171128
  Serious: Yes (Other)
  Sender: FDA-Public Use
  Company Number: TR-CIPLA LTD.-2017TR16517

PATIENT

DRUGS (1)
  1. RISPERIDONE. [Suspect]
     Active Substance: RISPERIDONE
     Indication: OPPOSITIONAL DEFIANT DISORDER
     Dosage: 1 FULL TABLESPOON
     Route: 048

REACTIONS (4)
  - Tetany [Recovered/Resolved]
  - Overdose [Recovered/Resolved]
  - Extrapyramidal disorder [Recovered/Resolved]
  - Incorrect dose administered [Recovered/Resolved]
